FAERS Safety Report 6540868-6 (Version None)
Quarter: 2010Q1

REPORT INFORMATION
  Report Type: 
  Country: None (occurrence: None)
  Receive Date: 20100118
  Receipt Date: 20100112
  Transmission Date: 20100710
  Serious: Yes (Death)
  Sender: FDA-Public Use
  Company Number: PHHY2010CA01472

PATIENT
  Sex: Female

DRUGS (3)
  1. TEGRETOL [Suspect]
     Dosage: 5.6 G
     Route: 048
  2. RISPERDAL [Concomitant]
  3. ANTIPSYCHOTICS [Concomitant]

REACTIONS (2)
  - COMPLETED SUICIDE [None]
  - INTENTIONAL OVERDOSE [None]
